FAERS Safety Report 5848857-1 (Version None)
Quarter: 2008Q3

REPORT INFORMATION
  Report Type: 
  Country: None (occurrence: None)
  Receive Date: 20080818
  Receipt Date: 20080812
  Transmission Date: 20090109
  Serious: Yes (Other)
  Sender: FDA-Public Use
  Company Number: US-PFIZER INC-2008060636

PATIENT
  Sex: Male
  Weight: 79.545 kg

DRUGS (7)
  1. LIPITOR [Suspect]
     Indication: HYPERCHOLESTEROLAEMIA
     Route: 048
     Dates: start: 20020101, end: 20080601
  2. LIPITOR [Suspect]
     Indication: HYPERLIPIDAEMIA
  3. ZOLOFT [Concomitant]
  4. PROTONIX [Concomitant]
  5. PROPECIA [Concomitant]
  6. ACETYLSALICYLIC ACID SRT [Concomitant]
  7. REQUIP [Concomitant]

REACTIONS (6)
  - APPENDICECTOMY [None]
  - BLOOD CREATINE PHOSPHOKINASE INCREASED [None]
  - FATIGUE [None]
  - HEPATIC ENZYME INCREASED [None]
  - MYALGIA [None]
  - PAIN [None]
